FAERS Safety Report 13155181 (Version 1)
Quarter: 2017Q1

REPORT INFORMATION
  Report Type: Spontaneous
  Country: US (occurrence: US)
  Receive Date: 20170126
  Receipt Date: 20170126
  Transmission Date: 20170428
  Serious: No
  Sender: FDA-Public Use
  Company Number: US-MYLANLABS-2016M1036647

PATIENT
  Age: 66 Year
  Sex: Female
  Weight: 72.56 kg

DRUGS (2)
  1. METOPROLOL TARTRATE TABLETS USP [Suspect]
     Active Substance: METOPROLOL TARTRATE
     Indication: BLOOD PRESSURE MANAGEMENT
  2. METOPROLOL TARTRATE TABLETS USP [Suspect]
     Active Substance: METOPROLOL TARTRATE
     Indication: VENTRICULAR EXTRASYSTOLES
     Dosage: 50 MG, BID
     Route: 048
     Dates: start: 20160721, end: 20160731

REACTIONS (3)
  - Abdominal pain upper [Not Recovered/Not Resolved]
  - Abdominal distension [Recovered/Resolved]
  - Diarrhoea [Recovered/Resolved]

NARRATIVE: CASE EVENT DATE: 201607
